FAERS Safety Report 12320610 (Version 1)
Quarter: 2016Q2

REPORT INFORMATION
  Report Type: Spontaneous
  Country: IT (occurrence: IT)
  Receive Date: 20160429
  Receipt Date: 20160429
  Transmission Date: 20160815
  Serious: Yes (Hospitalization)
  Sender: FDA-Public Use
  Company Number: PHHY2016IT056617

PATIENT
  Age: 52 Year

DRUGS (1)
  1. PHENYLBUTAZONE [Suspect]
     Active Substance: PHENYLBUTAZONE
     Indication: MUSCULOSKELETAL PAIN
     Dosage: 1 DF, QD
     Route: 065

REACTIONS (8)
  - Pyrexia [Recovered/Resolved]
  - Staphylococcal infection [Recovered/Resolved]
  - Tonsillitis [Recovered/Resolved]
  - Streptococcal infection [Recovered/Resolved]
  - Decreased appetite [Recovered/Resolved]
  - Asthenia [Recovered/Resolved]
  - Agranulocytosis [Recovered/Resolved]
  - Pneumonia [Recovered/Resolved]
